FAERS Safety Report 16831884 (Version 1)
Quarter: 2019Q3

REPORT INFORMATION
  Report Type: Spontaneous
  Country: US (occurrence: US)
  Receive Date: 20190920
  Receipt Date: 20190920
  Transmission Date: 20191005
  Serious: Yes (Other)
  Sender: FDA-Public Use
  Company Number: US-CORCEPT THERAPEUTICS INC.-US-2019CRT000230

PATIENT
  Age: 51 Year
  Sex: Female
  Weight: 87.75 kg

DRUGS (24)
  1. ARMOUR THYROID [Concomitant]
     Active Substance: THYROID, PORCINE
     Dosage: 60 MG, QD
     Route: 065
     Dates: start: 201906
  2. KORLYM [Suspect]
     Active Substance: MIFEPRISTONE
     Dosage: 900 MG, QD
     Route: 048
     Dates: start: 20190903
  3. LINZESS [Concomitant]
     Active Substance: LINACLOTIDE
     Indication: PRODUCT USED FOR UNKNOWN INDICATION
     Dosage: UNK
  4. KORLYM [Suspect]
     Active Substance: MIFEPRISTONE
     Dosage: 300 MG, QD
     Route: 048
     Dates: start: 201903, end: 20190428
  5. KORLYM [Suspect]
     Active Substance: MIFEPRISTONE
     Dosage: 600 MG, QOD (ALTERNATING DAYS)
     Route: 048
     Dates: start: 20190429, end: 20190602
  6. AMLODIPINE [Concomitant]
     Active Substance: AMLODIPINE BESYLATE
     Indication: PRODUCT USED FOR UNKNOWN INDICATION
     Dosage: UNK
     Dates: end: 20190306
  7. LIPITOR [Concomitant]
     Active Substance: ATORVASTATIN CALCIUM
     Dosage: 20 MG, UNK
     Dates: start: 20190327
  8. KORLYM [Suspect]
     Active Substance: MIFEPRISTONE
     Dosage: 1/2 TABLET
     Route: 048
     Dates: start: 20190224, end: 20190306
  9. LIPITOR [Concomitant]
     Active Substance: ATORVASTATIN CALCIUM
     Indication: PRODUCT USED FOR UNKNOWN INDICATION
     Dosage: UNK
  10. TRADJENTA [Concomitant]
     Active Substance: LINAGLIPTIN
     Indication: PRODUCT USED FOR UNKNOWN INDICATION
     Dosage: UNK
  11. ARMOUR THYROID [Concomitant]
     Active Substance: THYROID, PORCINE
     Dosage: 30 MG, QD
     Dates: start: 20190327
  12. KORLYM [Suspect]
     Active Substance: MIFEPRISTONE
     Dosage: 600 MG, QD
     Route: 048
     Dates: start: 20190603, end: 20190902
  13. FAMOTIDINE. [Concomitant]
     Active Substance: FAMOTIDINE
     Indication: PRODUCT USED FOR UNKNOWN INDICATION
     Dosage: UNK
  14. ATORVASTATIN [Concomitant]
     Active Substance: ATORVASTATIN
     Indication: PRODUCT USED FOR UNKNOWN INDICATION
     Dosage: UNK
  15. ARMOUR THYROID [Concomitant]
     Active Substance: THYROID, PORCINE
     Dosage: ALTERNATING DAYS OF 60 MCG AND 90 MCG
  16. KORLYM [Suspect]
     Active Substance: MIFEPRISTONE
     Indication: CUSHING^S SYNDROME
     Dosage: 300 MG, QD
     Route: 048
     Dates: start: 20190219, end: 20190223
  17. KORLYM [Suspect]
     Active Substance: MIFEPRISTONE
     Dosage: 300 MG, UNK
     Route: 048
     Dates: start: 20190307, end: 201903
  18. KORLYM [Suspect]
     Active Substance: MIFEPRISTONE
     Dosage: 300 MG, QOD
     Route: 048
     Dates: start: 20190429, end: 20190602
  19. METOPROLOL. [Suspect]
     Active Substance: METOPROLOL
     Indication: HEART RATE INCREASED
     Dosage: 50 MG, QD
     Route: 065
  20. OMEPRAZOLE. [Suspect]
     Active Substance: OMEPRAZOLE
     Indication: ABDOMINAL DISCOMFORT
  21. LOSARTAN AND HYDROCHLOROTHIAZIDE [Concomitant]
     Active Substance: HYDROCHLOROTHIAZIDE\LOSARTAN POTASSIUM
     Indication: PRODUCT USED FOR UNKNOWN INDICATION
     Dosage: UNK
  22. ATORVASTATIN [Concomitant]
     Active Substance: ATORVASTATIN
     Dosage: 40 MG, QD
     Route: 065
     Dates: start: 201906
  23. ARMOUR THYROID [Concomitant]
     Active Substance: THYROID, PORCINE
     Indication: PRODUCT USED FOR UNKNOWN INDICATION
     Dosage: UNK
  24. AMLODIPINE [Concomitant]
     Active Substance: AMLODIPINE BESYLATE
     Dosage: 2.5 MG, BID
     Dates: start: 20190307

REACTIONS (47)
  - Wrong technique in product usage process [Recovered/Resolved]
  - Hyperhidrosis [Recovered/Resolved]
  - Hypertrichosis [Recovering/Resolving]
  - Skin discolouration [Recovering/Resolving]
  - Fluid retention [Recovered/Resolved]
  - Hypoaesthesia [Unknown]
  - Abdominal pain upper [Recovered/Resolved]
  - Blood thyroid stimulating hormone increased [Unknown]
  - Abdominal distension [Unknown]
  - Low density lipoprotein increased [Unknown]
  - Accident [Unknown]
  - Dizziness [Recovered/Resolved]
  - Myalgia [Recovering/Resolving]
  - Fatigue [Unknown]
  - Cortisol increased [Unknown]
  - Abdominal discomfort [Recovering/Resolving]
  - Headache [Recovering/Resolving]
  - Feeling cold [Not Recovered/Not Resolved]
  - Ingrown hair [Unknown]
  - Weight increased [Unknown]
  - Nerve compression [Unknown]
  - Peripheral swelling [Recovered/Resolved]
  - Anxiety [Recovered/Resolved]
  - Spinal operation [Unknown]
  - Incorrect dose administered [Recovered/Resolved]
  - Blood cholesterol increased [Unknown]
  - Nausea [Recovered/Resolved]
  - Dyspnoea [Unknown]
  - Insomnia [Not Recovered/Not Resolved]
  - Knee operation [Unknown]
  - Dry skin [Unknown]
  - Neck pain [Not Recovered/Not Resolved]
  - Blood triglycerides increased [Unknown]
  - High density lipoprotein decreased [Unknown]
  - Heart rate increased [Recovering/Resolving]
  - Nervousness [Unknown]
  - Blood pressure fluctuation [Recovering/Resolving]
  - Mood swings [Unknown]
  - Alopecia [Unknown]
  - Flatulence [Recovering/Resolving]
  - Fear [Unknown]
  - Thyroxine increased [Unknown]
  - Antibody test abnormal [Unknown]
  - Blood glucose decreased [Recovering/Resolving]
  - Gastrooesophageal reflux disease [Not Recovered/Not Resolved]
  - Arthralgia [Recovering/Resolving]
  - Asthenia [Unknown]

NARRATIVE: CASE EVENT DATE: 2019
